FAERS Safety Report 4938535-5 (Version None)
Quarter: 2006Q1

REPORT INFORMATION
  Report Type: 
  Country: None (occurrence: None)
  Receive Date: 20060302
  Receipt Date: 20060227
  Transmission Date: 20060701
  Serious: Yes (Other)
  Sender: FDA-Public Use
  Company Number: FRWYE385610FEB06

PATIENT
  Age: 38 Year
  Sex: Female

DRUGS (2)
  1. ETHINYL ESTRADIOL AND LEVONORGESTREL [Suspect]
     Indication: CONTRACEPTION
     Dosage: 1 TABLET 1X PER 1 DAY ORAL
     Route: 048
     Dates: end: 20060101
  2. CEFIXIME CHEWABLE [Suspect]
     Dosage: UNKNOWN
     Route: 065
     Dates: start: 20060111, end: 20060121

REACTIONS (4)
  - DRUG EXPOSURE DURING PREGNANCY [None]
  - DRUG INEFFECTIVE [None]
  - DRUG INTERACTION [None]
  - PREGNANCY ON ORAL CONTRACEPTIVE [None]
